FAERS Safety Report 25237867 (Version 1)
Quarter: 2025Q2

REPORT INFORMATION
  Report Type: Other
  Country: US (occurrence: US)
  Receive Date: 20250425
  Receipt Date: 20250425
  Transmission Date: 20250717
  Serious: Yes (Hospitalization, Other)
  Sender: BIONPHARMA INC.
  Company Number: US-Bion-014832

PATIENT
  Sex: Female

DRUGS (20)
  1. IBUPROFEN [Suspect]
     Active Substance: IBUPROFEN
     Indication: Spinal stenosis
  2. AUGMENTIN [Concomitant]
     Active Substance: AMOXICILLIN\CLAVULANATE POTASSIUM
     Indication: Urinary tract infection
  3. ACYCLOVIR [Concomitant]
     Active Substance: ACYCLOVIR
     Indication: Evidence based treatment
  4. AMPICILLIN [Concomitant]
     Active Substance: AMPICILLIN
     Indication: Evidence based treatment
  5. VANCOMYCIN [Concomitant]
     Active Substance: VANCOMYCIN
     Indication: Evidence based treatment
  6. CEFTRIAXONE [Concomitant]
     Active Substance: CEFTRIAXONE
     Indication: Evidence based treatment
  7. AMOXICILLIN [Concomitant]
     Active Substance: AMOXICILLIN
     Indication: Postoperative care
  8. BACLOFEN [Concomitant]
     Active Substance: BACLOFEN
     Indication: Peritonsillar abscess
  9. PROCHLORPERAZINE [Concomitant]
     Active Substance: PROCHLORPERAZINE
     Indication: Peritonsillar abscess
  10. ACETAMINOPHEN [Concomitant]
     Active Substance: ACETAMINOPHEN
     Indication: Peritonsillar abscess
  11. CLINDAMYCIN [Concomitant]
     Active Substance: CLINDAMYCIN
     Indication: Peritonsillar abscess
  12. IBUPROFEN [Suspect]
     Active Substance: IBUPROFEN
     Indication: Neuropathy peripheral
  13. IBUPROFEN [Suspect]
     Active Substance: IBUPROFEN
     Indication: Pain
  14. IBUPROFEN [Suspect]
     Active Substance: IBUPROFEN
     Indication: Peritonsillar abscess
  15. CEFTRIAXONE [Concomitant]
     Active Substance: CEFTRIAXONE
     Indication: Urinary tract infection
  16. ACYCLOVIR [Concomitant]
     Active Substance: ACYCLOVIR
     Indication: Herpes simplex meningoencephalitis
  17. VANCOMYCIN [Concomitant]
     Active Substance: VANCOMYCIN
     Indication: Herpes simplex meningoencephalitis
  18. CEFTRIAXONE [Concomitant]
     Active Substance: CEFTRIAXONE
     Indication: Herpes simplex meningoencephalitis
  19. AMOXICILLIN [Concomitant]
     Active Substance: AMOXICILLIN
     Indication: Peritonsillar abscess
  20. AMOXICILLIN [Concomitant]
     Active Substance: AMOXICILLIN
     Indication: Prophylaxis

REACTIONS (1)
  - Meningitis aseptic [Recovering/Resolving]
